FAERS Safety Report 4501080-5 (Version None)
Quarter: 2004Q4

REPORT INFORMATION
  Report Type: 
  Country: None (occurrence: None)
  Receive Date: 20041110
  Receipt Date: 20041029
  Transmission Date: 20050328
  Serious: Yes (Other)
  Sender: FDA-Public Use
  Company Number: 2004085892

PATIENT
  Sex: Female
  Weight: 51.2565 kg

DRUGS (4)
  1. ROGAINE [Suspect]
     Indication: HYPOTRICHOSIS
     Dosage: 1 ML BID, TOPICAL
     Route: 061
  2. ENBUTOLOL SULFATE (PENBUTOLOL SULFATE) [Concomitant]
  3. VITAMIN NOS (VITAMINS NOS) [Concomitant]
  4. ANTINEOPLASTIC AGENTS (ANTINEOPLASTIC AGENTS) [Concomitant]

REACTIONS (2)
  - BREAST CANCER [None]
  - HYPOTRICHOSIS [None]
